FAERS Safety Report 6924409-7 (Version None)
Quarter: 2010Q3

REPORT INFORMATION
  Report Type: 
  Country: None (occurrence: None)
  Receive Date: 20100805
  Receipt Date: 20100727
  Transmission Date: 20110219
  Serious: No
  Sender: FDA-Public Use
  Company Number: US-145057

PATIENT
  Sex: Female
  Weight: 45.3597 kg

DRUGS (2)
  1. WINRHO [Suspect]
     Indication: IDIOPATHIC THROMBOCYTOPENIC PURPURA
     Dosage: INTRAVENOUS
     Route: 042
     Dates: start: 20050609, end: 20050609
  2. BENADRYL [Concomitant]

REACTIONS (9)
  - ABDOMINAL PAIN UPPER [None]
  - ASTHENIA [None]
  - CHILLS [None]
  - ERYTHEMA INFECTIOSUM [None]
  - FATIGUE [None]
  - HAEMOGLOBIN DECREASED [None]
  - NAUSEA [None]
  - PAIN [None]
  - PYREXIA [None]
